FAERS Safety Report 21583220 (Version 6)
Quarter: 2023Q1

REPORT INFORMATION
  Report Type: Spontaneous
  Country: PT (occurrence: PT)
  Receive Date: 20221111
  Receipt Date: 20230103
  Transmission Date: 20230418
  Serious: Yes (Hospitalization, Other)
  Sender: FDA-Public Use
  Company Number: PT-ASTELLAS-2022US038415

PATIENT
  Age: 62 Year
  Sex: Female

DRUGS (2)
  1. AMOXICILLIN\CLAVULANIC ACID [Suspect]
     Active Substance: AMOXICILLIN\CLAVULANIC ACID
     Indication: Pneumonia aspiration
     Dosage: UNK
     Route: 065
  2. AMOXICILLIN\CLAVULANIC ACID [Suspect]
     Active Substance: AMOXICILLIN\CLAVULANIC ACID
     Indication: Pneumonia

REACTIONS (13)
  - Drug-induced liver injury [Recovered/Resolved]
  - Hepatic lesion [Recovered/Resolved]
  - Pruritus [Recovered/Resolved]
  - Jaundice [Recovered/Resolved]
  - Choluria [Recovered/Resolved]
  - Deficiency of bile secretion [Recovered/Resolved]
  - Cholangitis acute [Recovered/Resolved]
  - Hyperbilirubinaemia [Recovered/Resolved]
  - Cholestasis [Recovered/Resolved]
  - Eosinophilia [Recovered/Resolved]
  - Cell death [Recovered/Resolved]
  - Biliary tract disorder [Recovered/Resolved]
  - Off label use [Unknown]
